FAERS Safety Report 4421329-7 (Version None)
Quarter: 2004Q3

REPORT INFORMATION
  Report Type: 
  Country: None (occurrence: None)
  Receive Date: 20040804
  Receipt Date: 20040722
  Transmission Date: 20050211
  Serious: Yes (Hospitalization)
  Sender: FDA-Public Use
  Company Number: 2004050422

PATIENT
  Age: 93 Year
  Sex: Female

DRUGS (3)
  1. NIFEDIPINE [Suspect]
     Indication: HYPERTENSION
     Dosage: (10 MG), SUBLINGUAL
     Route: 060
  2. ALL OTHER THERAPEUTIC PRODUCTS (ALL OTHER THERAPECUTIC PRODUCTS) [Concomitant]
  3. . [Concomitant]

REACTIONS (16)
  - ACUTE PULMONARY OEDEMA [None]
  - CARDIOMEGALY [None]
  - CARDIOVASCULAR DISORDER [None]
  - CHEST X-RAY ABNORMAL [None]
  - CREPITATIONS [None]
  - DYSPNOEA [None]
  - HEART RATE INCREASED [None]
  - HYPERHIDROSIS [None]
  - HYPOTENSION [None]
  - LEFT VENTRICULAR FAILURE [None]
  - LETHARGY [None]
  - MEDICATION ERROR [None]
  - ORTHOPNOEA [None]
  - OXYGEN SATURATION DECREASED [None]
  - PALLOR [None]
  - TACHYPNOEA [None]
